FAERS Safety Report 4552920-5 (Version None)
Quarter: 2005Q1

REPORT INFORMATION
  Report Type: 
  Country: None (occurrence: None)
  Receive Date: 20050113
  Receipt Date: 20050105
  Transmission Date: 20050727
  Serious: Yes (Hospitalization, Disabling, Other)
  Sender: FDA-Public Use
  Company Number: 200510059BCC

PATIENT
  Age: 55 Year
  Sex: Male
  Weight: 58.9676 kg

DRUGS (2)
  1. ALKA-SELTZER PLUS [Suspect]
     Indication: DIZZINESS
     Dosage: PRN
  2. ALKA-SELTZER PLUS [Suspect]
     Indication: NASOPHARYNGITIS
     Dosage: PRN

REACTIONS (5)
  - CEREBROVASCULAR ACCIDENT [None]
  - HYPERTENSION [None]
  - MYOCARDIAL INFARCTION [None]
  - QUADRUPLE VESSEL BYPASS GRAFT [None]
  - WALKING AID USER [None]
